FAERS Safety Report 16709285 (Version 2)
Quarter: 2019Q3

REPORT INFORMATION
  Report Type: Spontaneous
  Country: GB (occurrence: GB)
  Receive Date: 20190816
  Receipt Date: 20190822
  Transmission Date: 20191004
  Serious: Yes (Hospitalization, Other)
  Sender: FDA-Public Use
  Company Number: GB-DRREDDYS-GER/UKI/19/0113036

PATIENT
  Age: 41 Year
  Sex: Male

DRUGS (8)
  1. FEXOFENADINE HYDROCHLORIDE 180 [Suspect]
     Active Substance: FEXOFENADINE HYDROCHLORIDE
     Indication: PRURITUS
  2. ATENOLOL 1 [Concomitant]
     Indication: PRODUCT USED FOR UNKNOWN INDICATION
  3. FLUOXETINE [Concomitant]
     Active Substance: FLUOXETINE HYDROCHLORIDE
     Indication: PRODUCT USED FOR UNKNOWN INDICATION
  4. CICLOSPORIN 1 [Concomitant]
     Indication: PRODUCT USED FOR UNKNOWN INDICATION
  5. CLOPIDOGREL 1 [Concomitant]
     Indication: PRODUCT USED FOR UNKNOWN INDICATION
  6. FEXOFENADINE HYDROCHLORIDE 180 [Suspect]
     Active Substance: FEXOFENADINE HYDROCHLORIDE
     Indication: ECZEMA
     Route: 048
  7. QUESTRANLITE 3 [Concomitant]
     Indication: PRODUCT USED FOR UNKNOWN INDICATION
  8. FEXOFENADINE HYDROCHLORIDE 180 [Suspect]
     Active Substance: FEXOFENADINE HYDROCHLORIDE
     Indication: CHRONIC SPONTANEOUS URTICARIA

REACTIONS (5)
  - Fatigue [Unknown]
  - Prescribed overdose [Unknown]
  - Nightmare [Unknown]
  - Seizure [Unknown]
  - Insomnia [Unknown]

NARRATIVE: CASE EVENT DATE: 201905
